FAERS Safety Report 4278219-2 (Version None)
Quarter: 2004Q1

REPORT INFORMATION
  Report Type: 
  Country: None (occurrence: None)
  Receive Date: 20040123
  Receipt Date: 20040114
  Transmission Date: 20041129
  Serious: Yes (Hospitalization, Other)
  Sender: FDA-Public Use
  Company Number: FR-BRISTOL-MYERS SQUIBB COMPANY-12478863

PATIENT
  Age: 69 Year
  Sex: Male

DRUGS (4)
  1. MUCOMYST [Suspect]
     Indication: TRACHEOBRONCHITIS
     Route: 048
     Dates: start: 20031112, end: 20031116
  2. DOLIPRANE [Suspect]
     Indication: TRACHEOBRONCHITIS
     Route: 048
     Dates: start: 20031112, end: 20031116
  3. AUGMENTIN [Suspect]
     Indication: TRACHEOBRONCHITIS
     Route: 048
     Dates: start: 20031112, end: 20031115
  4. ARAVA [Concomitant]
     Dates: end: 20031116

REACTIONS (9)
  - DERMATITIS EXFOLIATIVE [None]
  - LYMPHADENOPATHY [None]
  - LYMPHOPROLIFERATIVE DISORDER [None]
  - MUCOSAL EROSION [None]
  - PURPURA [None]
  - PYREXIA [None]
  - RASH [None]
  - RASH MACULO-PAPULAR [None]
  - SPLENOMEGALY [None]
